FAERS Safety Report 26135155 (Version 1)
Quarter: 2025Q4

REPORT INFORMATION
  Report Type: Spontaneous
  Country: US (occurrence: US)
  Receive Date: 20251209
  Receipt Date: 20251209
  Transmission Date: 20260118
  Serious: No
  Sender: NOVEN
  Company Number: US-NOVEN PHARMACEUTICALS, INC.-2024-NOV-US001507

PATIENT
  Age: 52 Year
  Sex: Female
  Weight: 70.295 kg

DRUGS (1)
  1. ESTRADIOL [Suspect]
     Active Substance: ESTRADIOL
     Indication: Artificial menopause
     Dosage: 0.05 MG, EVERY 03 DAYS A WEEK (INITIALLY TWICE WEEKLY., THEN 04 DAYS A WEEK)
     Route: 062
     Dates: start: 2024

REACTIONS (6)
  - Anger [Recovered/Resolved]
  - Blood oestrogen increased [Recovered/Resolved]
  - Irritability [Recovered/Resolved]
  - Palpitations [Recovered/Resolved]
  - Insomnia [Recovered/Resolved]
  - Discomfort [Recovered/Resolved]

NARRATIVE: CASE EVENT DATE: 20240101
